FAERS Safety Report 10228756 (Version 1)
Quarter: 2014Q2

REPORT INFORMATION
  Report Type: Spontaneous
  Country: GB (occurrence: GB)
  Receive Date: 20140610
  Receipt Date: 20140610
  Transmission Date: 20141212
  Serious: Yes (Other)
  Sender: FDA-Public Use
  Company Number: GB-ELI_LILLY_AND_COMPANY-GB201405009739

PATIENT
  Age: 17 Year
  Sex: Female

DRUGS (7)
  1. OLANZAPINE [Suspect]
     Indication: POST-TRAUMATIC STRESS DISORDER
     Dosage: 20 MG, UNKNOWN
     Route: 065
  2. OLANZAPINE [Suspect]
     Indication: AUTISM SPECTRUM DISORDER
  3. CITALOPRAM [Suspect]
     Indication: POST-TRAUMATIC STRESS DISORDER
     Dosage: 40 MG, UNKNOWN
     Route: 065
  4. CITALOPRAM [Suspect]
     Indication: AUTISM SPECTRUM DISORDER
  5. DIAZEPAM [Suspect]
     Indication: POST-TRAUMATIC STRESS DISORDER
     Dosage: 1 DF, UNKNOWN
     Route: 065
  6. DIAZEPAM [Suspect]
     Indication: AUTISM SPECTRUM DISORDER
  7. VALIUM [Suspect]
     Indication: AUTISM SPECTRUM DISORDER
     Dosage: 20 MG, UNKNOWN
     Route: 065

REACTIONS (5)
  - Depression [Unknown]
  - Psychotic disorder [Unknown]
  - Anxiety [Unknown]
  - Hallucination, auditory [Unknown]
  - Off label use [Unknown]
